FAERS Safety Report 8491044-1 (Version None)
Quarter: 2012Q3

REPORT INFORMATION
  Report Type: 
  Country: None (occurrence: None)
  Receive Date: 20120706
  Receipt Date: 20120625
  Transmission Date: 20120928
  Serious: Yes (Hospitalization)
  Sender: FDA-Public Use
  Company Number: US-ELI_LILLY_AND_COMPANY-US201104005837

PATIENT
  Sex: Female
  Weight: 62.132 kg

DRUGS (27)
  1. FORTEO [Suspect]
     Dosage: 20 UG, QD
     Dates: end: 20110601
  2. FORTEO [Suspect]
     Dosage: 20 UG, QD
     Dates: end: 20110915
  3. OROTIC ACID [Concomitant]
  4. TOPAMAX [Concomitant]
     Dosage: 25 MG, QD
  5. FORTEO [Suspect]
     Dosage: 20 UG, QD
  6. CYMBALTA [Suspect]
     Indication: PAIN
     Dosage: UNK, UNKNOWN
     Route: 065
     Dates: start: 20120101
  7. MOBIC [Concomitant]
     Dosage: 15 MG, QD
  8. ANTIACID [Concomitant]
  9. ZOCOR [Concomitant]
  10. TOPROL-XL [Concomitant]
     Dosage: UNK, UNKNOWN
  11. FORTEO [Suspect]
     Dosage: 20 UG, QD
     Route: 065
     Dates: start: 20111214
  12. FORTEO [Suspect]
     Dosage: 20 UG, QD
     Route: 065
  13. FERROUS SULFATE TAB [Concomitant]
  14. PERCOCET [Concomitant]
     Indication: PAIN
     Dosage: 1-2 TABLETS 4-6 HOURS
  15. FOLIC ACID [Concomitant]
     Dosage: UNK, UNKNOWN
  16. FORTEO [Suspect]
     Dosage: 20 UG, QD
     Dates: start: 20110312
  17. OMEPRAZOLE [Concomitant]
     Dosage: UNK, QD
  18. VITAMIN B-12 [Concomitant]
  19. PAMELOR [Concomitant]
  20. FORTEO [Suspect]
     Dosage: 20 UG, QD
     Route: 065
  21. ASPIRIN [Concomitant]
     Dosage: 325 MG, QD
  22. COLACE [Concomitant]
     Dosage: 100 MG, BID
  23. FORTEO [Suspect]
     Indication: OSTEOPOROSIS
     Dosage: 20 UG, QD
     Dates: start: 20110412
  24. FORTEO [Suspect]
     Dosage: 20 UG, QD
  25. PRILOSEC [Concomitant]
  26. CALCIUM [Concomitant]
  27. CRESTOR [Concomitant]
     Dosage: 10 MG, QD

REACTIONS (27)
  - HEADACHE [None]
  - MUSCULOSKELETAL STIFFNESS [None]
  - PAIN IN EXTREMITY [None]
  - FALL [None]
  - CONSTIPATION [None]
  - MUSCLE TIGHTNESS [None]
  - MOBILITY DECREASED [None]
  - MOVEMENT DISORDER [None]
  - PAIN [None]
  - NAUSEA [None]
  - GAIT DISTURBANCE [None]
  - VOMITING [None]
  - BLOOD CALCIUM INCREASED [None]
  - MUSCLE SPASMS [None]
  - JOINT SWELLING [None]
  - DIZZINESS [None]
  - ARTHRALGIA [None]
  - SOMNOLENCE [None]
  - FLATULENCE [None]
  - FEAR [None]
  - RED BLOOD CELL SEDIMENTATION RATE INCREASED [None]
  - VULVOVAGINAL PAIN [None]
  - BONE PAIN [None]
  - MALAISE [None]
  - ARTHROPATHY [None]
  - OSTEOPOROSIS [None]
  - MEMORY IMPAIRMENT [None]
